FAERS Safety Report 13855079 (Version 2)
Quarter: 2017Q3

REPORT INFORMATION
  Report Type: Spontaneous
  Country: US (occurrence: US)
  Receive Date: 20170810
  Receipt Date: 20170810
  Transmission Date: 20171127
  Serious: No
  Sender: FDA-Public Use
  Company Number: US-BAYER-2017-146528

PATIENT
  Age: 83 Year
  Sex: Female
  Weight: 70 kg

DRUGS (5)
  1. STOOL SOFTENER (DOCUSATE) [Concomitant]
     Active Substance: DOCUSATE
  2. NEXIUM [Concomitant]
     Active Substance: ESOMEPRAZOLE MAGNESIUM
  3. CHILDRENS ASPIRIN [Concomitant]
     Active Substance: ASPIRIN
  4. NATUREMADE VITAMIN C [Concomitant]
  5. MIRALAX [Suspect]
     Active Substance: POLYETHYLENE GLYCOL 3350
     Indication: GASTROINTESTINAL DISORDER
     Route: 048
     Dates: start: 201706, end: 20170731

REACTIONS (3)
  - Weight increased [Not Recovered/Not Resolved]
  - Heart rate irregular [Unknown]
  - Product use issue [Unknown]

NARRATIVE: CASE EVENT DATE: 201706
